FAERS Safety Report 14777118 (Version 1)
Quarter: 2018Q2

REPORT INFORMATION
  Report Type: Spontaneous
  Country: US (occurrence: US)
  Receive Date: 20180419
  Receipt Date: 20180419
  Transmission Date: 20180711
  Serious: No
  Sender: FDA-Public Use
  Company Number: US-TEVA-784065USA

PATIENT
  Sex: Male

DRUGS (1)
  1. OXYCODONE HYDROCHLORIDE. [Suspect]
     Active Substance: OXYCODONE HYDROCHLORIDE

REACTIONS (5)
  - Headache [Unknown]
  - Product physical issue [Unknown]
  - Product solubility abnormal [Unknown]
  - Rhinorrhoea [Unknown]
  - Malaise [Not Recovered/Not Resolved]
